FAERS Safety Report 7988683-0 (Version None)
Quarter: 2011Q4

REPORT INFORMATION
  Report Type: 
  Country: None (occurrence: None)
  Receive Date: 20111218
  Receipt Date: 20111206
  Transmission Date: 20120403
  Serious: No
  Sender: FDA-Public Use
  Company Number: US-ELI_LILLY_AND_COMPANY-US201112002932

PATIENT
  Age: 40 Year
  Sex: Female

DRUGS (2)
  1. DEPAKOTE [Concomitant]
     Dosage: 250 MG, UNK
  2. CYMBALTA [Suspect]
     Indication: DEPRESSION
     Dosage: 120 MG, UNKNOWN

REACTIONS (1)
  - HEPATIC ENZYME INCREASED [None]
